FAERS Safety Report 5444230-9 (Version None)
Quarter: 2007Q3

REPORT INFORMATION
  Report Type: 
  Country: None (occurrence: None)
  Receive Date: 20070831
  Receipt Date: 20070827
  Transmission Date: 20080115
  Serious: Yes (Hospitalization)
  Sender: FDA-Public Use
  Company Number: MEDI-0004344

PATIENT
  Age: 5 Month
  Sex: 0
  Weight: 7.8 kg

DRUGS (3)
  1. SYNAGIS [Suspect]
     Indication: ANTIVIRAL PROPHYLAXIS
     Dosage: 100 MG, 1 IN 30 D,  INTRAMUSCULAR
     Route: 030
     Dates: start: 20051214, end: 20051214
  2. SYNAGIS [Suspect]
     Indication: ANTIVIRAL PROPHYLAXIS
     Dosage: 100 MG, 1 IN 30 D,  INTRAMUSCULAR
     Route: 030
     Dates: start: 20060223, end: 20060226
  3. SYNAGIS [Suspect]
     Indication: ANTIVIRAL PROPHYLAXIS
     Dosage: 100 MG, 1 IN 30 D,  INTRAMUSCULAR
     Route: 030
     Dates: start: 20060118

REACTIONS (1)
  - BRONCHIOLITIS [None]
